FAERS Safety Report 11821535 (Version 1)
Quarter: 2015Q4

REPORT INFORMATION
  Report Type: Spontaneous
  Country: US (occurrence: US)
  Receive Date: 20151210
  Receipt Date: 20151210
  Transmission Date: 20160305
  Serious: No
  Sender: FDA-Public Use
  Company Number: US-JNJFOC-20150409276

PATIENT
  Sex: Male

DRUGS (15)
  1. ALLOPURINOL. [Concomitant]
     Active Substance: ALLOPURINOL
  2. CENTRUM SILVER [Concomitant]
     Active Substance: MINERALS\VITAMINS
  3. BUMETANIDE. [Concomitant]
     Active Substance: BUMETANIDE
  4. BYSTOLIC [Concomitant]
     Active Substance: NEBIVOLOL HYDROCHLORIDE
  5. INDOMETHACIN. [Concomitant]
     Active Substance: INDOMETHACIN
  6. ATORVASTATIN [Concomitant]
     Active Substance: ATORVASTATIN
  7. PANTOPRAZOLE [Concomitant]
     Active Substance: PANTOPRAZOLE SODIUM
  8. COENZYME Q10 [Concomitant]
     Active Substance: UBIDECARENONE
  9. PROPAFENONE. [Concomitant]
     Active Substance: PROPAFENONE
  10. VANCOMYCIN [Concomitant]
     Active Substance: VANCOMYCIN
  11. IMBRUVICA [Suspect]
     Active Substance: IBRUTINIB
     Indication: CHRONIC LYMPHOCYTIC LEUKAEMIA
     Route: 048
     Dates: start: 20140813
  12. DILTIAZEM HCL EXTE-REL [Concomitant]
  13. TOCOPHERYL ACETATE [Concomitant]
     Active Substance: .ALPHA.-TOCOPHEROL ACETATE
  14. DIGOXIN. [Concomitant]
     Active Substance: DIGOXIN
  15. GLUCOSAMINE [Concomitant]
     Active Substance: GLUCOSAMINE

REACTIONS (1)
  - Renal pain [Unknown]
